FAERS Safety Report 17026027 (Version 1)
Quarter: 2019Q4

REPORT INFORMATION
  Report Type: Report from Study
  Country: JP (occurrence: JP)
  Receive Date: 20191113
  Receipt Date: 20191113
  Transmission Date: 20200122
  Serious: Yes (Hospitalization)
  Sender: FDA-Public Use
  Company Number: JP-BEH-2018091248

PATIENT
  Age: 81 Year
  Sex: Female
  Weight: 42.9 kg

DRUGS (28)
  1. BERIPLEX P/N [Suspect]
     Active Substance: COAGULATION FACTOR IX HUMAN\COAGULATION FACTOR VII HUMAN\COAGULATION FACTOR X HUMAN\PROTEIN C\PROTEIN S HUMAN\PROTHROMBIN
     Indication: HAEMORRHAGE
     Dosage: 1000 IU, SINGLE
     Route: 042
     Dates: start: 20180123
  2. WARFARIN [Concomitant]
     Active Substance: WARFARIN
     Indication: CORONARY ARTERY BYPASS
  3. ESLAX [Concomitant]
     Active Substance: ROCURONIUM BROMIDE
     Indication: SURGERY
     Dosage: UNK
     Route: 065
     Dates: start: 20180123, end: 20180123
  4. NEOSYNESIN                         /00116302/ [Concomitant]
     Indication: SURGERY
     Dosage: UNK
     Route: 065
     Dates: start: 20180123, end: 20180123
  5. NICARDIPINE [Concomitant]
     Active Substance: NICARDIPINE
     Dosage: UNK
     Route: 065
     Dates: start: 20180123, end: 20180124
  6. XARELTO [Concomitant]
     Active Substance: RIVAROXABAN
     Indication: CORONARY ARTERY BYPASS
     Dosage: 10 UNK
     Route: 048
  7. CEFAZOLIN [Concomitant]
     Active Substance: CEFAZOLIN
     Dosage: UNK
     Route: 065
     Dates: start: 20180123, end: 20180126
  8. LANSOPRAZOLE. [Concomitant]
     Active Substance: LANSOPRAZOLE
     Indication: PROPHYLAXIS
     Dosage: UNK
     Route: 048
     Dates: start: 20180123
  9. WARFARIN [Concomitant]
     Active Substance: WARFARIN
     Indication: ANGINA PECTORIS
     Dosage: 1 MG, QD
     Route: 048
     Dates: start: 20170316, end: 20180123
  10. XARELTO [Concomitant]
     Active Substance: RIVAROXABAN
     Indication: ANGINA PECTORIS
     Dosage: 10 MG, QD
     Route: 048
     Dates: start: 201802
  11. EPHEDRINE. [Concomitant]
     Active Substance: EPHEDRINE
     Indication: SURGERY
     Dosage: UNK
     Route: 065
     Dates: start: 20180123, end: 20180123
  12. SEVOFLURANE. [Concomitant]
     Active Substance: SEVOFLURANE
     Indication: SURGERY
     Dosage: UNK
     Route: 065
     Dates: start: 20180123, end: 20180123
  13. BERIPLEX P/N [Suspect]
     Active Substance: COAGULATION FACTOR IX HUMAN\COAGULATION FACTOR VII HUMAN\COAGULATION FACTOR X HUMAN\PROTEIN C\PROTEIN S HUMAN\PROTHROMBIN
     Indication: SURGERY
  14. FENTANYL. [Concomitant]
     Active Substance: FENTANYL
     Indication: SURGERY
  15. VOLUVEN [Concomitant]
     Active Substance: HYDROXYETHYL STARCH 130/0.4
     Indication: SURGERY
     Dosage: UNK
     Route: 065
     Dates: start: 20180123, end: 20180123
  16. MIDAZOLAM [Concomitant]
     Active Substance: MIDAZOLAM HYDROCHLORIDE
     Indication: SURGERY
     Dosage: UNK
     Route: 065
     Dates: start: 20180123, end: 20180123
  17. KEPPRA [Concomitant]
     Active Substance: LEVETIRACETAM
     Indication: PROPHYLAXIS
     Dosage: UNK
     Route: 048
     Dates: start: 20180124
  18. BERIPLEX P/N [Suspect]
     Active Substance: COAGULATION FACTOR IX HUMAN\COAGULATION FACTOR VII HUMAN\COAGULATION FACTOR X HUMAN\PROTEIN C\PROTEIN S HUMAN\PROTHROMBIN
     Indication: HAEMORRHAGE
     Dosage: 1000 IU, SINGLE
     Route: 042
     Dates: start: 20180123
  19. FENTANYL. [Concomitant]
     Active Substance: FENTANYL
     Indication: ANALGESIC THERAPY
     Dosage: UNK
     Route: 065
     Dates: start: 20180123, end: 20180124
  20. LANSOPRAZOLE. [Concomitant]
     Active Substance: LANSOPRAZOLE
     Indication: ULCER
  21. PROPOFOL. [Concomitant]
     Active Substance: PROPOFOL
     Indication: SEDATION
     Dosage: UNK
     Route: 065
     Dates: start: 20180123, end: 20180124
  22. HUMULIN R [Concomitant]
     Active Substance: INSULIN HUMAN
     Dosage: UNK
     Route: 065
     Dates: start: 20180124
  23. BICARBON [Concomitant]
     Active Substance: SODIUM BICARBONATE
     Indication: SURGERY
     Dosage: UNK
     Route: 065
     Dates: start: 20180123, end: 20180123
  24. BERIPLEX P/N [Suspect]
     Active Substance: COAGULATION FACTOR IX HUMAN\COAGULATION FACTOR VII HUMAN\COAGULATION FACTOR X HUMAN\PROTEIN C\PROTEIN S HUMAN\PROTHROMBIN
     Indication: SURGERY
  25. XARELTO [Concomitant]
     Active Substance: RIVAROXABAN
     Indication: PROPHYLAXIS
  26. MIYA-BM [Concomitant]
     Active Substance: CLOSTRIDIUM BUTYRICUM SPORES STRAIN M-55
     Indication: PROPHYLAXIS
     Dosage: UNK
     Route: 048
     Dates: start: 20180124, end: 20180201
  27. MIYA-BM [Concomitant]
     Active Substance: CLOSTRIDIUM BUTYRICUM SPORES STRAIN M-55
     Indication: ENTEROCOLITIS
  28. PHYSIO 140 [Concomitant]
     Active Substance: CALCIUM GLUCONATE\DEXTROSE\MAGNESIUM CHLORIDE\POTASSIUM CHLORIDE\SODIUM ACETATE\SODIUM CHLORIDE\TRISODIUM CITRATE DIHYDRATE
     Dosage: UNK
     Route: 065
     Dates: start: 20180123, end: 20180127

REACTIONS (3)
  - Fibrin D dimer increased [Not Recovered/Not Resolved]
  - Anaemia [Recovered/Resolved]
  - Amylase increased [Unknown]

NARRATIVE: CASE EVENT DATE: 20180124
